FAERS Safety Report 11056340 (Version 1)
Quarter: 2015Q2

REPORT INFORMATION
  Report Type: Spontaneous
  Country: TR (occurrence: TR)
  Receive Date: 20150422
  Receipt Date: 20150422
  Transmission Date: 20150821
  Serious: Yes (Other)
  Sender: FDA-Public Use
  Company Number: TR-MYLANLABS-2015M1013309

PATIENT

DRUGS (2)
  1. PREDNISOLONE. [Suspect]
     Active Substance: PREDNISOLONE
     Indication: BEHCET^S SYNDROME
     Dosage: 60 MG/DAY, AND THEN REDUCED
     Route: 065
  2. PREDNISOLONE. [Suspect]
     Active Substance: PREDNISOLONE
     Dosage: 30 MG/DAY, AND THEN DISCONTINUED
     Route: 065

REACTIONS (2)
  - Drug withdrawal syndrome [Recovered/Resolved]
  - Mania [Recovered/Resolved]
